FAERS Safety Report 18958149 (Version 3)
Quarter: 2021Q1

REPORT INFORMATION
  Report Type: Spontaneous
  Country: JP (occurrence: JP)
  Receive Date: 20210302
  Receipt Date: 20210329
  Transmission Date: 20210420
  Serious: Yes (Hospitalization, Other)
  Sender: FDA-Public Use
  Company Number: JP-PFIZER INC-2021209136

PATIENT
  Age: 83 Year
  Sex: Female

DRUGS (2)
  1. LIPITOR [Suspect]
     Active Substance: ATORVASTATIN CALCIUM
     Indication: HYPERCHOLESTEROLAEMIA
     Dosage: 10 MG/DAY, UNKNOWN FREQ
     Route: 048
     Dates: start: 20201230, end: 20210218
  2. CALONAL [Suspect]
     Active Substance: ACETAMINOPHEN
     Dosage: 1000 MG/DAY, UNKNOWN FREQ.
     Route: 048

REACTIONS (2)
  - Pyrexia [Recovered/Resolved]
  - Interstitial lung disease [Recovering/Resolving]

NARRATIVE: CASE EVENT DATE: 20210218
